FAERS Safety Report 8473309-2 (Version None)
Quarter: 2012Q2

REPORT INFORMATION
  Report Type: 
  Country: None (occurrence: None)
  Receive Date: 20120628
  Receipt Date: 20120619
  Transmission Date: 20120825
  Serious: Yes (Hospitalization)
  Sender: FDA-Public Use
  Company Number: US-ASTRAZENECA-2011SE32236

PATIENT
  Age: 49 Year
  Sex: Female

DRUGS (30)
  1. NEXIUM [Suspect]
     Dosage: EVERY DAY
     Route: 048
     Dates: start: 20030101
  2. NEXIUM [Suspect]
     Route: 048
     Dates: start: 20100226
  3. HYDROCO/ACETAMIN [Concomitant]
     Indication: BACK PAIN
     Dosage: 10MG/325MG TO BE TAKEN EVERY 12 HOURS
     Route: 048
     Dates: start: 20091006
  4. METOPROLOL TARTRATE [Concomitant]
     Route: 048
     Dates: start: 20100211
  5. SIMVASTATIN [Concomitant]
     Dosage: 10/20MG ONE TABLET PO DAILY
     Route: 048
     Dates: start: 20100211
  6. NITRIPTYLINE [Concomitant]
     Dates: start: 20100211
  7. CRESTOR [Concomitant]
     Indication: BLOOD CHOLESTEROL INCREASED
  8. PREVACID [Concomitant]
     Route: 048
     Dates: start: 20091017
  9. NEXIUM [Suspect]
     Indication: GASTROOESOPHAGEAL REFLUX DISEASE
     Route: 048
     Dates: start: 20010101, end: 20110101
  10. NEXIUM [Suspect]
     Route: 048
     Dates: start: 20091019
  11. HYDROCODONE BITARTRATE [Concomitant]
     Indication: PAIN
     Dosage: AS NEEDED
  12. ZOLPIDEM [Concomitant]
     Indication: SLEEP DISORDER
  13. CYCLOBENZAPRINE [Concomitant]
     Route: 048
     Dates: start: 20090930
  14. HYDROCODONE BITARTRATE [Concomitant]
     Dosage: 10/325 MG ONE TA PO DAILY
     Route: 048
     Dates: start: 20100211
  15. EXFORGE [Concomitant]
     Dosage: 5/320 ONE TAB PO DAILY
     Route: 048
     Dates: start: 20100211
  16. HYDROCHLOROTHIAZIDE [Concomitant]
     Indication: HYPERTENSION
  17. HYDROCODONE BITARTRATE [Concomitant]
     Dates: start: 20100323
  18. AMITRIPTYLINE HCL [Concomitant]
     Indication: DEPRESSION
  19. HYDROCO/ACETAMIN [Concomitant]
     Dosage: ONE OR TWO TAB PO DAILY
     Route: 048
     Dates: start: 20100211
  20. METOPROLOL TARTRATE [Concomitant]
     Route: 048
     Dates: start: 20100325
  21. NEURONTIN [Concomitant]
     Route: 048
     Dates: start: 20100211
  22. NITROGLYCERIN [Concomitant]
     Dosage: 0.2MG PER HOUR PATCHES
     Dates: start: 20091001
  23. ZOLPIDEM [Concomitant]
     Dates: start: 20100309
  24. OMEPRAZOLE CR [Concomitant]
     Dates: start: 20010101, end: 20110101
  25. HYDROCO/ACETAMIN [Concomitant]
     Dosage: 10-325 MG
     Route: 048
     Dates: start: 20100325
  26. NEURONTIN [Concomitant]
     Route: 048
     Dates: start: 20091002
  27. METHOCARBAMOL [Concomitant]
     Route: 048
     Dates: start: 20100211
  28. NEXIUM [Suspect]
     Route: 048
     Dates: start: 20100211
  29. HYDROCHLOROTHIAZIDE [Concomitant]
     Route: 048
     Dates: start: 20100211
  30. PHENERGAN [Concomitant]
     Route: 048
     Dates: start: 20100211

REACTIONS (7)
  - OSTEOPOROSIS [None]
  - SCIATIC NERVE INJURY [None]
  - ANKLE FRACTURE [None]
  - ARTHRITIS [None]
  - GLAUCOMA [None]
  - WALKING AID USER [None]
  - DEPRESSION [None]
